FAERS Safety Report 5204605-X (Version None)
Quarter: 2007Q1

REPORT INFORMATION
  Report Type: 
  Country: None (occurrence: None)
  Receive Date: 20070110
  Receipt Date: 20060808
  Transmission Date: 20070707
  Serious: No
  Sender: FDA-Public Use
  Company Number: US-BRISTOL-MYERS SQUIBB COMPANY-13385869

PATIENT
  Age: 47 Year
  Sex: Female
  Weight: 59 kg

DRUGS (7)
  1. ABILIFY [Suspect]
     Indication: MAJOR DEPRESSION
     Dates: start: 20060215, end: 20060501
  2. SKELAXIN [Concomitant]
     Dosage: DURATION OF THERAPY:  8 YEARS.
  3. MORPHINE [Concomitant]
     Dosage: DURATION OF THERAPY:  8 YEARS.
  4. VICODIN [Concomitant]
     Dosage: DURATION OF THERAPY:  8 YEARS.
  5. COPAXONE [Concomitant]
     Dosage: DURATION OF THERAPY:  8 YEARS.
  6. XANAX [Concomitant]
     Dosage: DURATION OF THERAPY:  8 YEARS.
  7. REGULON [Concomitant]

REACTIONS (6)
  - AGITATION [None]
  - AKATHISIA [None]
  - ANXIETY [None]
  - ARTHRALGIA [None]
  - INSOMNIA [None]
  - RESTLESSNESS [None]
